FAERS Safety Report 13914032 (Version 1)
Quarter: 2017Q3

REPORT INFORMATION
  Report Type: Spontaneous
  Country: US (occurrence: US)
  Receive Date: 20170828
  Receipt Date: 20170828
  Transmission Date: 20171127
  Serious: No
  Sender: FDA-Public Use
  Company Number: US-ROCHE-1124099

PATIENT
  Age: 12 Year
  Sex: Female

DRUGS (6)
  1. NEPHRO-FER [Concomitant]
     Route: 065
  2. NUTROPIN AQ [Suspect]
     Active Substance: SOMATROPIN
     Indication: CHRONIC KIDNEY DISEASE
     Route: 058
     Dates: start: 199803
  3. FOLIC ACID. [Concomitant]
     Active Substance: FOLIC ACID
  4. NUTROPIN AQ [Suspect]
     Active Substance: SOMATROPIN
     Indication: AZOTAEMIA
  5. PRINIVIL [Concomitant]
     Active Substance: LISINOPRIL
     Route: 065
  6. ROCALTROL [Concomitant]
     Active Substance: CALCITRIOL
     Route: 065

REACTIONS (5)
  - Thymus enlargement [Unknown]
  - Haemoglobin decreased [Unknown]
  - Haematocrit decreased [Unknown]
  - Gastric disorder [Unknown]
  - Blood phosphorus increased [Unknown]

NARRATIVE: CASE EVENT DATE: 199811
